FAERS Safety Report 25394729 (Version 2)
Quarter: 2025Q3

REPORT INFORMATION
  Report Type: Spontaneous
  Country: CN (occurrence: CN)
  Receive Date: 20250604
  Receipt Date: 20250701
  Transmission Date: 20251020
  Serious: No
  Sender: JOHNSON AND JOHNSON
  Company Number: CN-JNJFOC-20250526834

PATIENT
  Age: 33 Year
  Sex: Female

DRUGS (1)
  1. GUSELKUMAB [Suspect]
     Active Substance: GUSELKUMAB
     Indication: Psoriasis
     Route: 058

REACTIONS (5)
  - Accidental exposure to product [Unknown]
  - Device issue [Unknown]
  - Pruritus [Unknown]
  - Needle issue [Unknown]
  - Product dose omission issue [Unknown]
